FAERS Safety Report 6821102-6 (Version None)
Quarter: 2010Q3

REPORT INFORMATION
  Report Type: 
  Country: None (occurrence: None)
  Receive Date: 20100707
  Receipt Date: 20080212
  Transmission Date: 20110219
  Serious: No
  Sender: FDA-Public Use
  Company Number: US-PFIZER INC-2007106212

PATIENT
  Sex: Male

DRUGS (6)
  1. ZYRTEC [Suspect]
  2. ZOLOFT [Suspect]
     Indication: DEPRESSION
     Dates: start: 20070401, end: 20071201
  3. CLONAZEPAM [Concomitant]
  4. VICODIN [Concomitant]
  5. PREVACID [Concomitant]
  6. ALBUTEROL [Concomitant]
     Route: 055

REACTIONS (3)
  - DIZZINESS [None]
  - NYSTAGMUS [None]
  - TINNITUS [None]
